FAERS Safety Report 8726900 (Version 3)
Quarter: 2012Q4

REPORT INFORMATION
  Report Type: 
  Country: JP (occurrence: JP)
  Receive Date: 20120816
  Receipt Date: 20121119
  Transmission Date: 20130627
  Serious: Yes (Other)
  Sender: FDA-Public Use
  Company Number: JP-ROCHE-1100485

PATIENT
  Age: 27 Year
  Sex: Female

DRUGS (5)
  1. CELLCEPT [Suspect]
     Indication: PROPHYLAXIS AGAINST TRANSPLANT REJECTION
     Dosage: Dosage is uncertain.
     Route: 048
  2. TACROLIMUS HYDRATE [Suspect]
     Indication: PROPHYLAXIS AGAINST TRANSPLANT REJECTION
     Dosage: Dosage is uncertain, Drug reported GRACEPTOR
     Route: 048
  3. MEDROL [Concomitant]
     Indication: PROPHYLAXIS AGAINST TRANSPLANT REJECTION
     Dosage: Dosage is uncertain.
     Route: 048
  4. SIMULECT [Concomitant]
     Indication: PROPHYLAXIS AGAINST TRANSPLANT REJECTION
     Dosage: Dosage is uncertain.
     Route: 042
  5. NEORAL [Concomitant]
     Indication: PROPHYLAXIS AGAINST TRANSPLANT REJECTION
     Dosage: Dosage is uncertain
     Route: 065

REACTIONS (3)
  - Leukoencephalopathy [Recovering/Resolving]
  - Neutropenia [Recovering/Resolving]
  - Ureteric anastomosis complication [Recovering/Resolving]
